FAERS Safety Report 24645398 (Version 1)
Quarter: 2024Q4

REPORT INFORMATION
  Report Type: Spontaneous
  Country: NL (occurrence: NL)
  Receive Date: 20241121
  Receipt Date: 20241121
  Transmission Date: 20250115
  Serious: Yes (Life-Threatening, Hospitalization, Other)
  Sender: AUROBINDO
  Company Number: NL-LRB-01012524

PATIENT
  Age: 42 Year
  Sex: Male
  Weight: 65 kg

DRUGS (6)
  1. CLOZAPINE [Suspect]
     Active Substance: CLOZAPINE
     Indication: Schizophrenia
     Dosage: 400 MILLIGRAM, ONCE A DAY (2 PIECES ONCE A DAY)
     Route: 048
     Dates: start: 20130501
  2. FLUVOXAMINE [Concomitant]
     Active Substance: FLUVOXAMINE
     Indication: Product used for unknown indication
     Dosage: 50 MILLIGRAM
     Route: 048
  3. ATORVASTATIN [Concomitant]
     Active Substance: ATORVASTATIN
     Indication: Product used for unknown indication
     Dosage: 10 MILLIGRAM
     Route: 048
  4. VALPROIC ACID [Concomitant]
     Active Substance: VALPROIC ACID
     Indication: Product used for unknown indication
     Dosage: 500 MILLIGRAM
     Route: 048
  5. CLOPIDOGREL [Concomitant]
     Active Substance: CLOPIDOGREL BISULFATE
     Indication: Product used for unknown indication
     Dosage: 75 MILLIGRAM
     Route: 048
  6. PANTOPRAZOLE SODIUM [Concomitant]
     Active Substance: PANTOPRAZOLE SODIUM
     Indication: Product used for unknown indication
     Dosage: 20 MILLIGRAM
     Route: 048

REACTIONS (3)
  - Pericarditis constrictive [Unknown]
  - Pericarditis [Recovering/Resolving]
  - Serositis [Recovering/Resolving]

NARRATIVE: CASE EVENT DATE: 20240812
